FAERS Safety Report 13439183 (Version 2)
Quarter: 2017Q3

REPORT INFORMATION
  Report Type: Spontaneous
  Country: FR (occurrence: FR)
  Receive Date: 20170413
  Receipt Date: 20170720
  Transmission Date: 20171127
  Serious: Yes (Other)
  Sender: FDA-Public Use
  Company Number: FR-PFM-2017-02397

PATIENT

DRUGS (2)
  1. HEMANGIOL [Suspect]
     Active Substance: PROPRANOLOL HYDROCHLORIDE
     Dosage: 1MG/KG X 2
     Route: 048
     Dates: start: 20160405, end: 20160801
  2. HEMANGIOL [Suspect]
     Active Substance: PROPRANOLOL HYDROCHLORIDE
     Indication: INFANTILE HAEMANGIOMA
     Dosage: 0.5 MG/KG X 2 STEPWISE
     Route: 048
     Dates: start: 20160329

REACTIONS (2)
  - Loss of consciousness [Recovered/Resolved]
  - Breath holding [Recovered/Resolved]

NARRATIVE: CASE EVENT DATE: 20160410
